FAERS Safety Report 6992510-8 (Version None)
Quarter: 2010Q3

REPORT INFORMATION
  Report Type: 
  Country: None (occurrence: None)
  Receive Date: 20100917
  Receipt Date: 20100617
  Transmission Date: 20110219
  Serious: Yes (Other)
  Sender: FDA-Public Use
  Company Number: FR-BAYER-201020310GPV

PATIENT
  Age: 88 Year
  Sex: Female

DRUGS (12)
  1. NEXAVAR [Suspect]
     Indication: HEPATIC NEOPLASM MALIGNANT
     Dosage: TOTAL DAILY DOSE: 800 MG
     Route: 048
     Dates: end: 20100321
  2. NEXAVAR [Suspect]
     Dosage: DRUG RESTARTED AT A REDUCED DOSE
     Route: 048
     Dates: start: 20100331
  3. NEXAVAR [Suspect]
     Dosage: DRUG RESTARTED AT A REDUCED DOSE
     Route: 048
  4. NEXAVAR [Suspect]
     Route: 048
  5. ALDACTONE [Concomitant]
     Indication: HYPERTENSION
  6. IXPRIM [Concomitant]
     Indication: OSTEOARTHRITIS
  7. ACETAMINOPHEN W/ PROPOXYPHENE HCL [Concomitant]
     Indication: OSTEOARTHRITIS
  8. VENTOLIN [Concomitant]
     Indication: ASTHMA
  9. BECOTIDE [Concomitant]
     Indication: ASTHMA
  10. ANTIHISTAMINES [Concomitant]
  11. MORPHINIC [Concomitant]
  12. PAROXETINE HCL [Concomitant]

REACTIONS (8)
  - BALANCE DISORDER [None]
  - DISORIENTATION [None]
  - OEDEMA PERIPHERAL [None]
  - PALMAR-PLANTAR ERYTHRODYSAESTHESIA SYNDROME [None]
  - PRURITUS [None]
  - PYREXIA [None]
  - TREMOR [None]
  - URTICARIA [None]
